FAERS Safety Report 6771724-6 (Version None)
Quarter: 2010Q2

REPORT INFORMATION
  Report Type: 
  Country: None (occurrence: None)
  Receive Date: 20100616
  Receipt Date: 20090923
  Transmission Date: 20101027
  Serious: No
  Sender: FDA-Public Use
  Company Number: US-ASTRAZENECA-2009SE15126

PATIENT
  Sex: Female

DRUGS (3)
  1. ATACAND [Suspect]
     Route: 048
  2. UNSPECIFIED DIURETIC [Concomitant]
  3. UNSPECIFIED CARDIAC MEDICINE [Concomitant]

REACTIONS (2)
  - DIZZINESS [None]
  - MALAISE [None]
